FAERS Safety Report 12884074 (Version 3)
Quarter: 2019Q4

REPORT INFORMATION
  Report Type: Spontaneous
  Country: US (occurrence: US)
  Receive Date: 20161026
  Receipt Date: 20191213
  Transmission Date: 20200122
  Serious: No
  Sender: FDA-Public Use
  Company Number: US-TEVA-699012ACC

PATIENT
  Age: 38 Year
  Sex: Female
  Weight: 62.2 kg

DRUGS (4)
  1. RETIN-A [Concomitant]
     Active Substance: TRETINOIN
     Route: 061
     Dates: start: 20160712
  2. MOTRIN [Concomitant]
     Active Substance: IBUPROFEN
     Dosage: PRN
     Dates: start: 20160923
  3. MELQUIN HP [Concomitant]
     Active Substance: HYDROQUINONE
     Route: 061
     Dates: start: 20160713
  4. PARAGARD T 380A [Suspect]
     Active Substance: COPPER
     Indication: CONTRACEPTION
     Dates: start: 20140528, end: 20160913

REACTIONS (4)
  - Chloasma [Not Recovered/Not Resolved]
  - Metrorrhagia [Recovered/Resolved]
  - Maternal exposure during pregnancy [Unknown]
  - Vaginal haemorrhage [Unknown]

NARRATIVE: CASE EVENT DATE: 20150530
